FAERS Safety Report 4964187-4 (Version None)
Quarter: 2006Q2

REPORT INFORMATION
  Report Type: 
  Country: None (occurrence: None)
  Receive Date: 20060404
  Receipt Date: 20060404
  Transmission Date: 20061013
  Serious: Yes (Other)
  Sender: FDA-Public Use
  Company Number: None

PATIENT
  Age: 62 Year
  Sex: Male
  Weight: 105 kg

DRUGS (10)
  1. PREDNISOLONE ACETATE OPHTHALMIC SUSPENSION/DROPS [Suspect]
     Indication: IRITIS
     Dosage: 1 DROP BOTH EYES UP TO QID OPHTHALMIC
     Route: 047
     Dates: start: 20060307, end: 20060403
  2. ALBUTEROL [Concomitant]
  3. ASPIRIN [Concomitant]
  4. FELODIPINE [Concomitant]
  5. HCTZ25/TRIAMTERENE [Concomitant]
  6. LISINOPRIL [Concomitant]
  7. METOPROLOL [Concomitant]
  8. TERAZOSIN [Concomitant]
  9. VARDEMAFIL [Concomitant]
  10. SILDENAFIL [Concomitant]

REACTIONS (5)
  - CONDITION AGGRAVATED [None]
  - DRUG INEFFECTIVE [None]
  - IRITIS [None]
  - PHARMACEUTICAL PRODUCT COMPLAINT [None]
  - THERAPEUTIC RESPONSE UNEXPECTED WITH DRUG SUBSTITUTION [None]
